FAERS Safety Report 5048809-8 (Version None)
Quarter: 2006Q3

REPORT INFORMATION
  Report Type: 
  Country: None (occurrence: None)
  Receive Date: 20060705
  Receipt Date: 20060615
  Transmission Date: 20061208
  Serious: No
  Sender: FDA-Public Use
  Company Number: JP200605006044

PATIENT
  Age: 59 Year
  Sex: Male

DRUGS (2)
  1. GEMZAR [Suspect]
     Indication: PANCREATIC CARCINOMA
     Dosage: 400 MG, OTHER, INTRAVENOUS
     Route: 042
  2. THERAPEUTIC RADIOPHARMACEUTICALS [Concomitant]

REACTIONS (2)
  - DIZZINESS [None]
  - NAUSEA [None]
